APPROVED DRUG PRODUCT: NITROGLYCERIN
Active Ingredient: NITROGLYCERIN
Strength: 0.3MG
Dosage Form/Route: TABLET;SUBLINGUAL
Application: A210153 | Product #001
Applicant: ZYDUS PHARMACEUTICALS USA INC
Approved: Mar 8, 2022 | RLD: No | RS: No | Type: DISCN